FAERS Safety Report 24800952 (Version 6)
Quarter: 2025Q1

REPORT INFORMATION
  Report Type: Spontaneous
  Country: DE (occurrence: DE)
  Receive Date: 20250102
  Receipt Date: 20250328
  Transmission Date: 20250408
  Serious: Yes (Hospitalization, Other)
  Sender: ALEXION PHARMACEUTICALS
  Company Number: DE-PEI-202400026057

PATIENT
  Age: 4 Day
  Weight: 3.2 kg

DRUGS (1)
  1. NIRSEVIMAB [Suspect]
     Active Substance: NIRSEVIMAB
     Indication: Respiratory syncytial virus immunisation
     Route: 065

REACTIONS (8)
  - Circulatory collapse [Recovered/Resolved]
  - Bradycardia [Recovered/Resolved]
  - Hypopnoea [Recovered/Resolved]
  - Neonatal hypoxia [Recovered/Resolved]
  - Hypotonia [Unknown]
  - Neonatal respiratory arrest [Recovered/Resolved]
  - Cyanosis [Recovered/Resolved]
  - Pallor [Recovered/Resolved]
